FAERS Safety Report 19320704 (Version 2)
Quarter: 2021Q4

REPORT INFORMATION
  Report Type: Spontaneous
  Country: US (occurrence: US)
  Receive Date: 20210527
  Receipt Date: 20211217
  Transmission Date: 20220303
  Serious: No
  Sender: FDA-Public Use
  Company Number: US-PFIZER INC-2019358943

PATIENT
  Age: 59 Year
  Sex: Male

DRUGS (5)
  1. LYRICA [Suspect]
     Active Substance: PREGABALIN
     Indication: Rheumatoid arthritis
     Dosage: 400 MG, DAILY (ONE IN THE MORNING, ONE AT LUNCH TIME, AND TWO BEFORE BEDTIME)
  2. LYRICA [Suspect]
     Active Substance: PREGABALIN
     Indication: Polymyalgia rheumatica
  3. LYRICA [Suspect]
     Active Substance: PREGABALIN
     Indication: Immunosuppressant drug therapy
  4. LYRICA [Suspect]
     Active Substance: PREGABALIN
     Indication: Osteoarthritis
  5. LYRICA [Suspect]
     Active Substance: PREGABALIN
     Indication: Steroid therapy

REACTIONS (2)
  - Off label use [Unknown]
  - Restless legs syndrome [Unknown]
